FAERS Safety Report 23368551 (Version 2)
Quarter: 2024Q1

REPORT INFORMATION
  Report Type: Spontaneous
  Country: US (occurrence: US)
  Receive Date: 20240105
  Receipt Date: 20240328
  Transmission Date: 20240409
  Serious: No
  Sender: FDA-Public Use
  Company Number: US-ARDELYX-2023ARDX000709

PATIENT
  Sex: Female
  Weight: 57 kg

DRUGS (12)
  1. IBSRELA [Suspect]
     Active Substance: TENAPANOR HYDROCHLORIDE
     Indication: Irritable bowel syndrome
     Dosage: 50 MILLIGRAM, QD
     Route: 048
     Dates: start: 20240301
  2. IBSRELA [Suspect]
     Active Substance: TENAPANOR HYDROCHLORIDE
     Dosage: 50 MILLIGRAM, BID
     Route: 048
     Dates: start: 20240222
  3. IBSRELA [Suspect]
     Active Substance: TENAPANOR HYDROCHLORIDE
     Dosage: 100 MILLIGRAM, QHS (BEDTIME)
     Route: 048
     Dates: start: 20231031
  4. IBSRELA [Suspect]
     Active Substance: TENAPANOR HYDROCHLORIDE
     Dosage: 50 MILLIGRAM, BID
     Route: 048
     Dates: start: 2023
  5. DOCUSATE SODIUM [Concomitant]
     Active Substance: DOCUSATE SODIUM
     Indication: Irritable bowel syndrome
     Dosage: 2 DOSAGE FORM, QD
     Route: 065
     Dates: start: 20240223
  6. MAGNESIUM CITRATE [Concomitant]
     Active Substance: MAGNESIUM CITRATE
     Indication: Irritable bowel syndrome
     Dosage: 750 MILLIGRAM, QD
     Route: 065
     Dates: start: 20240223
  7. VIIBRYD [Concomitant]
     Active Substance: VILAZODONE HYDROCHLORIDE
     Indication: Anxiety
     Dosage: UNK
     Route: 065
  8. VIIBRYD [Concomitant]
     Active Substance: VILAZODONE HYDROCHLORIDE
     Indication: Depression
  9. LYRICA [Concomitant]
     Active Substance: PREGABALIN
     Indication: Back pain
     Dosage: UNK
     Route: 065
  10. TYLENOL [Concomitant]
     Active Substance: ACETAMINOPHEN
     Indication: Back pain
     Dosage: UNK
     Route: 065
  11. IBUPROFEN [Concomitant]
     Active Substance: IBUPROFEN
     Indication: Back pain
     Dosage: UNK
     Route: 065
  12. KLONOPIN [Concomitant]
     Active Substance: CLONAZEPAM
     Indication: Anxiety
     Dosage: UNK
     Route: 065

REACTIONS (9)
  - Nausea [Unknown]
  - Weight decreased [Unknown]
  - Abdominal pain upper [Unknown]
  - Decreased appetite [Unknown]
  - Illness [Unknown]
  - Gastrointestinal bacterial overgrowth [Unknown]
  - Diarrhoea [Unknown]
  - Prescribed overdose [Unknown]
  - Product dose omission issue [Unknown]

NARRATIVE: CASE EVENT DATE: 20230101
